FAERS Safety Report 7047796-0 (Version None)
Quarter: 2010Q4

REPORT INFORMATION
  Report Type: 
  Country: None (occurrence: None)
  Receive Date: 20101015
  Receipt Date: 20101008
  Transmission Date: 20110411
  Serious: Yes (Disabling, Other)
  Sender: FDA-Public Use
  Company Number: US-PFIZER INC-2010128997

PATIENT
  Sex: Female
  Weight: 59.9 kg

DRUGS (10)
  1. LIPITOR [Suspect]
     Indication: BLOOD CHOLESTEROL INCREASED
     Dosage: UNK
     Route: 048
  2. LEVOTHYROXINE [Concomitant]
     Indication: THYROID DISORDER
     Dosage: UNK
  3. CELEXA [Concomitant]
     Indication: BIPOLAR DISORDER
     Dosage: 20 MG, DAILY
  4. ZOLPIDEM [Concomitant]
     Indication: SLEEP DISORDER
     Dosage: UNK
  5. ALBUTEROL [Concomitant]
     Indication: ASTHMA
     Dosage: UNK, AS NEEDED
  6. MONTELUKAST SODIUM [Concomitant]
     Indication: ASTHMA
     Dosage: UNK
  7. PREMARIN [Concomitant]
     Dosage: 625 MG, UNK
  8. LASIX [Concomitant]
     Dosage: 40 MG, UNK
  9. MULTI-VITAMINS [Concomitant]
     Dosage: UNK
  10. CITRACAL + D [Concomitant]
     Dosage: UNK

REACTIONS (9)
  - BLOOD CHOLESTEROL INCREASED [None]
  - DIARRHOEA [None]
  - FALL [None]
  - HIV TEST POSITIVE [None]
  - KAWASAKI'S DISEASE [None]
  - MEMORY IMPAIRMENT [None]
  - MUSCLE SPASMS [None]
  - NEUROPATHY PERIPHERAL [None]
  - PAIN [None]
